FAERS Safety Report 22793835 (Version 4)
Quarter: 2024Q1

REPORT INFORMATION
  Report Type: Spontaneous
  Country: DE (occurrence: DE)
  Receive Date: 20230807
  Receipt Date: 20240308
  Transmission Date: 20240410
  Serious: Yes (Hospitalization, Other)
  Sender: FDA-Public Use
  Company Number: DE-002147023-NVSC2023DE164623

PATIENT
  Sex: Male
  Weight: 71.6 kg

DRUGS (4)
  1. ATORVASTATIN [Suspect]
     Active Substance: ATORVASTATIN
     Indication: Product used for unknown indication
     Dosage: UNK
     Route: 065
     Dates: start: 2021
  2. LEQVIO [Suspect]
     Active Substance: INCLISIRAN SODIUM
     Indication: Type IIa hyperlipidaemia
     Dosage: 284 MG, ONCE/SINGLE
     Route: 065
     Dates: start: 20230427, end: 20230427
  3. CIPROFLOXACIN [Concomitant]
     Active Substance: CIPROFLOXACIN
     Indication: Biopsy prostate
     Dosage: UNK
     Route: 065
     Dates: start: 202307, end: 202307
  4. ENOXAPARIN [Concomitant]
     Active Substance: ENOXAPARIN
     Indication: Biopsy prostate
     Dosage: UNK, ONCE/SINGLE (8000 IE)
     Route: 065
     Dates: start: 202307, end: 202307

REACTIONS (20)
  - Graft complication [Recovered/Resolved]
  - Scar [Unknown]
  - Wound [Recovered/Resolved]
  - Discharge [Recovered/Resolved]
  - Skin ulcer [Not Recovered/Not Resolved]
  - Wound [Recovered/Resolved]
  - Muscle spasms [Recovering/Resolving]
  - Foot deformity [Recovering/Resolving]
  - Wound complication [Recovered/Resolved]
  - Gait disturbance [Not Recovered/Not Resolved]
  - Cold sweat [Recovering/Resolving]
  - Burning sensation [Not Recovered/Not Resolved]
  - Erythema [Not Recovered/Not Resolved]
  - Hypoaesthesia [Not Recovered/Not Resolved]
  - Pruritus [Recovering/Resolving]
  - Sensory disturbance [Not Recovered/Not Resolved]
  - Pain in extremity [Not Recovered/Not Resolved]
  - Peripheral swelling [Not Recovered/Not Resolved]
  - Hypersensitivity [Not Recovered/Not Resolved]
  - Aspartate aminotransferase increased [Recovered/Resolved]

NARRATIVE: CASE EVENT DATE: 20230101
